FAERS Safety Report 8333498-7 (Version None)
Quarter: 2012Q1

REPORT INFORMATION
  Report Type: 
  Country: None (occurrence: None)
  Receive Date: 20120329
  Receipt Date: 20080825
  Transmission Date: 20120608
  Serious: Yes (Other)
  Sender: FDA-Public Use
  Company Number: PHEH2008US07542

PATIENT
  Sex: Male

DRUGS (1)
  1. EXELON [Suspect]
     Dosage: 6 MG, QOD

REACTIONS (4)
  - COMMUNICATION DISORDER [None]
  - TREATMENT NONCOMPLIANCE [None]
  - AMNESIA [None]
  - DRUG INEFFECTIVE [None]
